FAERS Safety Report 8849395 (Version 1)
Quarter: 2012Q4

REPORT INFORMATION
  Report Type: 
  Country: US (occurrence: US)
  Receive Date: 20121017
  Receipt Date: 20121017
  Transmission Date: 20130627
  Serious: Yes (Other)
  Sender: FDA-Public Use
  Company Number: US-PFIZER INC-2012257896

PATIENT
  Age: 49 Year
  Sex: Female
  Weight: 97.51 kg

DRUGS (7)
  1. LYRICA [Suspect]
     Indication: FIBROMYALGIA
     Dosage: 75 mg, daily
     Dates: start: 2012
  2. NEURONTIN [Concomitant]
     Indication: FIBROMYALGIA
     Dosage: 300 mg, 3x/day
  3. NORCO [Concomitant]
     Indication: MYALGIA
     Dosage: 5/325 mg, 2x/day
  4. FLEXERIL [Concomitant]
     Indication: MUSCLE RELAXANT THERAPY
     Dosage: 10 mg, daily
  5. FERROUS SULPHATE [Concomitant]
     Indication: ANAEMIA
     Dosage: 325 mg, as needed
  6. DEXLANSOPRAZOLE [Concomitant]
     Indication: GASTROOESOPHAGEAL REFLUX DISEASE
     Dosage: 60 mg, daily
  7. RISPERIDONE [Concomitant]
     Indication: ANXIETY
     Dosage: 4 mg, daily

REACTIONS (2)
  - Breast disorder [Unknown]
  - Medication error [Unknown]
